FAERS Safety Report 23047156 (Version 3)
Quarter: 2023Q4

REPORT INFORMATION
  Report Type: Spontaneous
  Country: PT (occurrence: PT)
  Receive Date: 20231009
  Receipt Date: 20231229
  Transmission Date: 20240110
  Serious: Yes (Hospitalization)
  Sender: FDA-Public Use
  Company Number: PT-JNJFOC-20230972130

PATIENT
  Age: 71 Year
  Sex: Female

DRUGS (1)
  1. RYBREVANT [Suspect]
     Active Substance: AMIVANTAMAB-VMJW
     Indication: Lung neoplasm malignant
     Route: 041
     Dates: start: 20230803

REACTIONS (3)
  - Metastases to meninges [Unknown]
  - Rhinorrhoea [Unknown]
  - Lacrimation increased [Unknown]
